FAERS Safety Report 12955571 (Version 2)
Quarter: 2016Q4

REPORT INFORMATION
  Report Type: Spontaneous
  Country: US (occurrence: US)
  Receive Date: 20161118
  Receipt Date: 20161208
  Transmission Date: 20170207
  Serious: Yes (Death)
  Sender: FDA-Public Use
  Company Number: US-PFIZER INC-2016536282

PATIENT

DRUGS (4)
  1. HYDROCODONE [Suspect]
     Active Substance: HYDROCODONE
     Indication: ACUTE STRESS DISORDER
     Dosage: UNK
  2. ACETAMINOPHEN. [Concomitant]
     Active Substance: ACETAMINOPHEN
     Indication: ACUTE STRESS DISORDER
     Dosage: UNK
  3. ALPRAZOLAM. [Suspect]
     Active Substance: ALPRAZOLAM
     Indication: ACUTE STRESS DISORDER
     Dosage: UNK
  4. OXYCODHYDROONE [Concomitant]
     Indication: ACUTE STRESS DISORDER
     Dosage: UNK

REACTIONS (1)
  - Toxicity to various agents [Fatal]
